FAERS Safety Report 5500078-8 (Version None)
Quarter: 2007Q4

REPORT INFORMATION
  Report Type: 
  Country: None (occurrence: None)
  Receive Date: 20071024
  Receipt Date: 20071009
  Transmission Date: 20080405
  Serious: Yes (Hospitalization, Other)
  Sender: FDA-Public Use
  Company Number: 100#08#2007-03970

PATIENT
  Age: 46 Year
  Sex: Female

DRUGS (2)
  1. COTRIMOXAZOLE (BACTRIM) (SULFAMETHOXAZOLE + TRIMETHOPRIM) [Suspect]
     Indication: CYSTITIS
     Dosage: 2 X 160 + 800 MG
     Route: 048
  2. OPIPRAMOL (OPIPRAMOL) (OPIPRAMOL) [Concomitant]

REACTIONS (10)
  - ABNORMAL BEHAVIOUR [None]
  - ACUTE PSYCHOSIS [None]
  - AGITATION [None]
  - DISTURBANCE IN ATTENTION [None]
  - HALLUCINATIONS, MIXED [None]
  - INAPPROPRIATE AFFECT [None]
  - INCOHERENT [None]
  - MENTAL STATUS CHANGES [None]
  - PYELONEPHRITIS [None]
  - UROSEPSIS [None]
